FAERS Safety Report 16471479 (Version 2)
Quarter: 2019Q3

REPORT INFORMATION
  Report Type: Spontaneous
  Country: US (occurrence: US)
  Receive Date: 20190624
  Receipt Date: 20190730
  Transmission Date: 20191004
  Serious: Yes (Hospitalization, Other)
  Sender: FDA-Public Use
  Company Number: US-BAUSCH-BL-2019-017944

PATIENT
  Age: 30 Year
  Sex: Female
  Weight: 64.01 kg

DRUGS (17)
  1. MESTINON [Suspect]
     Active Substance: PYRIDOSTIGMINE BROMIDE
     Dosage: 2X/DAY (DURING THE DAY)
     Route: 048
     Dates: start: 2019, end: 2019
  2. IVIG [Concomitant]
     Active Substance: HUMAN IMMUNOGLOBULIN G
     Indication: PRODUCT USED FOR UNKNOWN INDICATION
     Dates: start: 201811
  3. ZZZQUILL [Concomitant]
     Active Substance: DIPHENHYDRAMINE HYDROCHLORIDE
     Indication: PRODUCT USED FOR UNKNOWN INDICATION
     Route: 048
     Dates: end: 201905
  4. MESTINON [Suspect]
     Active Substance: PYRIDOSTIGMINE BROMIDE
     Dosage: 1X/DAY AT NIGHT
     Route: 048
     Dates: start: 2019
  5. FIRDAPSE [Suspect]
     Active Substance: AMIFAMPRIDINE
     Indication: MYASTHENIC SYNDROME
     Dosage: 4X/PER DAY
     Route: 048
     Dates: start: 2017, end: 201904
  6. BENADRYL [Concomitant]
     Active Substance: DIPHENHYDRAMINE HYDROCHLORIDE
     Indication: PRODUCT USED FOR UNKNOWN INDICATION
     Dosage: 100-125 MG ORALLY NIGHTLY AS NEEDED
     Route: 048
  7. MESTINON [Suspect]
     Active Substance: PYRIDOSTIGMINE BROMIDE
     Dosage: 4X/DAY 4 DOSAGE UNITS EVERY 4 HOURS
     Route: 065
     Dates: start: 201905, end: 201905
  8. ESCITALOPRAM [Concomitant]
     Active Substance: ESCITALOPRAM OXALATE
     Indication: PRODUCT USED FOR UNKNOWN INDICATION
     Route: 048
  9. IBUPROFEN. [Concomitant]
     Active Substance: IBUPROFEN
     Indication: HEADACHE
     Dosage: AS NEEDED
     Route: 048
  10. FIRDAPSE [Suspect]
     Active Substance: AMIFAMPRIDINE
     Dosage: 4X/PER DAY (DOSE INCREASED TO 2 TABLETS (20 MG) PER DOSE)
     Route: 048
     Dates: start: 201904, end: 20190520
  11. FIRDAPSE [Suspect]
     Active Substance: AMIFAMPRIDINE
     Dosage: 4X/PER DAY
     Route: 048
     Dates: start: 201905
  12. VITAMIN B12 [Concomitant]
     Active Substance: CYANOCOBALAMIN
     Indication: PRODUCT USED FOR UNKNOWN INDICATION
     Route: 048
  13. FIRDAPSE [Suspect]
     Active Substance: AMIFAMPRIDINE
     Dosage: 4X/PER DAY (EVERY 6 HOURS)
     Route: 048
     Dates: start: 201905, end: 201905
  14. FIRDAPSE [Suspect]
     Active Substance: AMIFAMPRIDINE
     Dosage: 1X/PER DAY
     Route: 048
     Dates: start: 201905, end: 201905
  15. LITHIUM. [Suspect]
     Active Substance: LITHIUM
     Indication: PRODUCT USED FOR UNKNOWN INDICATION
     Route: 065
  16. MESTINON [Suspect]
     Active Substance: PYRIDOSTIGMINE BROMIDE
     Dosage: 4X/DAY (MAXIMUM DOSE)
     Route: 048
     Dates: start: 201905, end: 2019
  17. MESTINON [Suspect]
     Active Substance: PYRIDOSTIGMINE BROMIDE
     Indication: MYASTHENIC SYNDROME
     Dosage: 4 DOSAGE UNITS EVERY 4-6 HOURS
     Route: 065
     Dates: end: 201905

REACTIONS (16)
  - Insomnia [Recovered/Resolved]
  - Drug ineffective [Unknown]
  - Electrocardiogram T wave abnormal [Unknown]
  - Hypokalaemia [Recovered/Resolved]
  - Condition aggravated [Recovering/Resolving]
  - Diarrhoea [Unknown]
  - Myasthenic syndrome [Recovering/Resolving]
  - Ill-defined disorder [Unknown]
  - Myasthenic syndrome [Unknown]
  - Restrictive pulmonary disease [Unknown]
  - Mental disorder [Unknown]
  - Liver disorder [Unknown]
  - Decubitus ulcer [Unknown]
  - Headache [Unknown]
  - Cholinergic syndrome [Recovered/Resolved]
  - Blood bilirubin increased [Unknown]

NARRATIVE: CASE EVENT DATE: 2019
